FAERS Safety Report 7229767-4 (Version None)
Quarter: 2011Q1

REPORT INFORMATION
  Report Type: 
  Country: None (occurrence: None)
  Receive Date: 20110117
  Receipt Date: 20110111
  Transmission Date: 20110831
  Serious: Yes (Other)
  Sender: FDA-Public Use
  Company Number: GB-PFIZER INC-2011007734

PATIENT
  Age: 17 Year
  Sex: Female

DRUGS (1)
  1. DEPO-PROVERA [Suspect]
     Indication: CONTRACEPTION
     Dosage: 150 MG, UNK
     Route: 030

REACTIONS (7)
  - MALAISE [None]
  - CHILLS [None]
  - VOMITING [None]
  - ASTHENIA [None]
  - HYPOTENSION [None]
  - TREMOR [None]
  - URTICARIA [None]
